FAERS Safety Report 5712721-9 (Version None)
Quarter: 2008Q2

REPORT INFORMATION
  Report Type: 
  Country: None (occurrence: None)
  Receive Date: 20080422
  Receipt Date: 20080408
  Transmission Date: 20081010
  Serious: Yes (Hospitalization, Other)
  Sender: FDA-Public Use
  Company Number: US-JNJFOC-20080400368

PATIENT
  Sex: Female
  Weight: 62.81 kg

DRUGS (8)
  1. DOXIL [Suspect]
     Dosage: CYCLE 2
     Route: 042
  2. DOXIL [Suspect]
     Indication: ACUTE MYELOID LEUKAEMIA
     Dosage: CYCLE 1
     Route: 042
  3. VELCADE [Suspect]
     Dosage: 8 DAYS, CYCLE 2
     Route: 042
  4. VELCADE [Suspect]
     Route: 042
  5. VELCADE [Suspect]
     Route: 042
  6. VELCADE [Suspect]
     Route: 042
  7. VELCADE [Suspect]
     Route: 042
  8. VELCADE [Suspect]
     Indication: ACUTE MYELOID LEUKAEMIA
     Route: 042

REACTIONS (4)
  - ASTHENIA [None]
  - NEUROPATHY PERIPHERAL [None]
  - OFF LABEL USE [None]
  - PANCREATITIS ACUTE [None]
